FAERS Safety Report 24747553 (Version 2)
Quarter: 2024Q4

REPORT INFORMATION
  Report Type: Spontaneous
  Country: JP (occurrence: JP)
  Receive Date: 20241218
  Receipt Date: 20241223
  Transmission Date: 20250115
  Serious: Yes (Other)
  Sender: BAYER HEALTHCARE LLC
  Company Number: JP-BAYER-2024A177487

PATIENT
  Age: 87 Year
  Sex: Male

DRUGS (2)
  1. CLARITIN REDITABS [Interacting]
     Active Substance: LORATADINE
     Indication: Hypersensitivity
     Dosage: UNK UNK, PRN
     Route: 048
     Dates: start: 202407
  2. CLARITIN REDITABS [Interacting]
     Active Substance: LORATADINE
     Indication: Hypersensitivity
     Dosage: UNK
     Dates: start: 20241128, end: 20241206

REACTIONS (3)
  - Delirium [Unknown]
  - Alcohol interaction [None]
  - Treatment noncompliance [None]

NARRATIVE: CASE EVENT DATE: 20241207
